FAERS Safety Report 16097748 (Version 1)
Quarter: 2019Q1

REPORT INFORMATION
  Report Type: Other
  Country: ES (occurrence: ES)
  Receive Date: 20190320
  Receipt Date: 20190320
  Transmission Date: 20190418
  Serious: Yes (Hospitalization, Other)
  Sender: FDA-Public Use
  Company Number: ES-LEADING PHARMA, LLC-2064337

PATIENT
  Age: 51 Year
  Sex: Male

DRUGS (1)
  1. LORAZEPAM. [Suspect]
     Active Substance: LORAZEPAM

REACTIONS (6)
  - Adjustment disorder [None]
  - Overdose [None]
  - Acute kidney injury [None]
  - Loss of consciousness [None]
  - Drug abuse [None]
  - Renal tubular necrosis [None]
